FAERS Safety Report 16964930 (Version 1)
Quarter: 2019Q4

REPORT INFORMATION
  Report Type: Spontaneous
  Country: NL (occurrence: NL)
  Receive Date: 20191028
  Receipt Date: 20191028
  Transmission Date: 20200122
  Serious: Yes (Hospitalization, Other)
  Sender: FDA-Public Use
  Company Number: NL-SCIEGEN PHARMACEUTICALS INC-2019SCILIT00282

PATIENT

DRUGS (2)
  1. HYDROCHLOROTHIAZIDE TABLETS [Suspect]
     Active Substance: HYDROCHLOROTHIAZIDE
  2. DIAZOXIDE [Interacting]
     Active Substance: DIAZOXIDE

REACTIONS (2)
  - Drug interaction [Recovered/Resolved]
  - Immune thrombocytopenic purpura [Unknown]
